FAERS Safety Report 8915751 (Version 2)
Quarter: 2012Q4

REPORT INFORMATION
  Report Type: 
  Country: US (occurrence: US)
  Receive Date: 20121119
  Receipt Date: 20121204
  Transmission Date: 20130627
  Serious: Yes (Death, Other)
  Sender: FDA-Public Use
  Company Number: US-TEVA-366989USA

PATIENT
  Age: 19 Month
  Sex: Male

DRUGS (1)
  1. SUBOXONE [Suspect]

REACTIONS (5)
  - Accidental overdose [Fatal]
  - Poisoning [Fatal]
  - Brain oedema [Unknown]
  - Pulmonary oedema [Unknown]
  - Vomiting [Unknown]
